FAERS Safety Report 8097008-4 (Version None)
Quarter: 2012Q1

REPORT INFORMATION
  Report Type: 
  Country: None (occurrence: None)
  Receive Date: 20120129
  Receipt Date: 20111202
  Transmission Date: 20120608
  Serious: Yes (Hospitalization)
  Sender: FDA-Public Use
  Company Number: US-ABBOTT-11P-163-0880836-00

PATIENT
  Age: 41 Year
  Sex: Female

DRUGS (12)
  1. VITAMIN B-12 [Concomitant]
     Indication: VITAMIN SUPPLEMENTATION
     Route: 030
  2. HUMIRA [Suspect]
     Indication: CROHN'S DISEASE
     Dosage: (160 MG)
     Dates: start: 20111003, end: 20111003
  3. LOMOTIL [Concomitant]
     Indication: CROHN'S DISEASE
     Route: 048
  4. PAXIL [Concomitant]
     Indication: ANXIETY
  5. ELAVIL [Concomitant]
     Indication: PAIN
     Dosage: AT BEDTIME
     Route: 048
  6. ELAVIL [Concomitant]
     Indication: MIGRAINE
  7. LORCET-HD [Concomitant]
     Indication: PAIN
     Dosage: 7.5/650MG THREE TIMES DAILY
     Route: 048
  8. PAXIL [Concomitant]
     Indication: DEPRESSION
     Dosage: AT BEDTIME
     Route: 048
  9. HUMIRA [Suspect]
     Dates: start: 20111031
  10. HUMIRA [Suspect]
     Dosage: (80MG)
     Dates: start: 20111017, end: 20111017
  11. PROMETHAZINE [Concomitant]
     Indication: NAUSEA
     Route: 048
  12. BENTYL [Concomitant]
     Indication: CROHN'S DISEASE
     Route: 048

REACTIONS (10)
  - EXTERNAL EAR PAIN [None]
  - EAR LOBE INFECTION [None]
  - CROHN'S DISEASE [None]
  - SEBORRHOEIC DERMATITIS [None]
  - FATIGUE [None]
  - PSORIASIS [None]
  - WOUND [None]
  - MUSCLE SPASMS [None]
  - DIARRHOEA [None]
  - ASTHENIA [None]
